FAERS Safety Report 4345780-9 (Version None)
Quarter: 2004Q2

REPORT INFORMATION
  Report Type: 
  Country: None (occurrence: None)
  Receive Date: 20040421
  Receipt Date: 20040413
  Transmission Date: 20050107
  Serious: Yes (Hospitalization, Other)
  Sender: FDA-Public Use
  Company Number: 2004209082DE

PATIENT
  Sex: Female

DRUGS (6)
  1. CABERGOLINE [Suspect]
     Indication: PARKINSON'S DISEASE
     Dosage: 8 MG/DAY, ORAL
     Route: 048
     Dates: start: 20000301
  2. MADOPAR (BENSERAZIDE HYDROCHLORIDE) [Concomitant]
  3. MOVERGAN [Concomitant]
  4. URBASON [Concomitant]
  5. GASTROZEPIN [Concomitant]
  6. ENDOXAN [Concomitant]

REACTIONS (3)
  - MITRAL VALVE INCOMPETENCE [None]
  - PERICARDIAL EFFUSION [None]
  - TRICUSPID VALVE INCOMPETENCE [None]
